FAERS Safety Report 4322814-9 (Version None)
Quarter: 2004Q1

REPORT INFORMATION
  Report Type: 
  Country: None (occurrence: None)
  Receive Date: 20040324
  Receipt Date: 19961106
  Transmission Date: 20041129
  Serious: Yes (Death, Life-Threatening)
  Sender: FDA-Public Use
  Company Number: M061262

PATIENT
  Age: 67 Year
  Sex: Female

DRUGS (7)
  1. TAXOL [Suspect]
     Indication: BREAST CANCER METASTATIC
     Route: 050
  2. MORPHINE SULFATE [Concomitant]
  3. HEPARIN [Concomitant]
     Dosage: DOSE UNIT: UNIT
     Route: 050
  4. FAMOTIDINE [Concomitant]
     Route: 050
  5. ONDANSETRON HCL [Concomitant]
     Indication: PROPHYLAXIS
     Route: 050
  6. DEXAMETHASONE [Concomitant]
     Indication: PROPHYLAXIS
     Route: 050
  7. DIPHENHYDRAMINE HCL [Concomitant]
     Indication: PROPHYLAXIS
     Route: 050

REACTIONS (2)
  - DEATH [None]
  - MYOCARDIAL INFARCTION [None]
